FAERS Safety Report 5256944-4 (Version None)
Quarter: 2007Q1

REPORT INFORMATION
  Report Type: 
  Country: None (occurrence: None)
  Receive Date: 20070307
  Receipt Date: 20070227
  Transmission Date: 20070707
  Serious: Yes (Other)
  Sender: FDA-Public Use
  Company Number: CHWYE802527FEB07

PATIENT
  Age: 54 Year
  Sex: Female

DRUGS (5)
  1. EFFEXOR [Suspect]
     Indication: LISTLESS
     Dosage: 75 TO 150 MG PER DAY
     Route: 048
     Dates: start: 20061101, end: 20070221
  2. EFFEXOR [Suspect]
     Route: 048
     Dates: start: 20070222
  3. LAMICTAL [Concomitant]
     Route: 048
  4. METOPROLOL SUCCINATE [Concomitant]
     Route: 048
  5. CLOZAPINE [Concomitant]
     Route: 048

REACTIONS (7)
  - CONDITION AGGRAVATED [None]
  - DISORIENTATION [None]
  - DISTURBANCE IN ATTENTION [None]
  - RESTLESSNESS [None]
  - SCHIZOAFFECTIVE DISORDER [None]
  - SUICIDAL IDEATION [None]
  - THINKING ABNORMAL [None]
